FAERS Safety Report 9768993 (Version 2)
Quarter: 2014Q1

REPORT INFORMATION
  Report Type: Spontaneous
  Country: GB (occurrence: None)
  Receive Date: 20131216
  Receipt Date: 20140116
  Transmission Date: 20141002
  Serious: Yes (Other)
  Sender: FDA-Public Use
  Company Number: ANTARES-2013-000001

PATIENT
  Sex: 0

DRUGS (1)
  1. METHOTREXATE [Suspect]
     Indication: UVEITIS
     Dosage: 400 UG IN 0.1 ML
     Route: 031

REACTIONS (1)
  - Intraocular pressure increased [None]
